FAERS Safety Report 8181878-5 (Version None)
Quarter: 2012Q1

REPORT INFORMATION
  Report Type: 
  Country: None (occurrence: None)
  Receive Date: 20120302
  Receipt Date: 20120228
  Transmission Date: 20120608
  Serious: Yes (Death, Other)
  Sender: FDA-Public Use
  Company Number: GB-ROCHE-1044255

PATIENT
  Age: 18 Year
  Sex: Female

DRUGS (1)
  1. ISOTRETINOIN [Suspect]
     Indication: ACNE

REACTIONS (7)
  - DEPRESSION [None]
  - FATIGUE [None]
  - STRESS [None]
  - COMPLETED SUICIDE [None]
  - SELF INJURIOUS BEHAVIOUR [None]
  - SUICIDE ATTEMPT [None]
  - SOCIAL AVOIDANT BEHAVIOUR [None]
